FAERS Safety Report 9699319 (Version 2)
Quarter: 2015Q3

REPORT INFORMATION
  Report Type: Spontaneous
  Country: US (occurrence: US)
  Receive Date: 20131120
  Receipt Date: 20150803
  Transmission Date: 20151125
  Serious: No
  Sender: FDA-Public Use
  Company Number: US-GILEAD-2008-0015514

PATIENT
  Age: 50 Year
  Sex: Female
  Weight: 67.58 kg

DRUGS (7)
  1. SYNTHROID [Concomitant]
     Active Substance: LEVOTHYROXINE SODIUM
     Route: 048
  2. REVATIO [Concomitant]
     Active Substance: SILDENAFIL CITRATE
     Route: 048
  3. VENTAVIS [Concomitant]
     Active Substance: ILOPROST
     Route: 055
  4. SPIRONOLACTONE. [Concomitant]
     Active Substance: SPIRONOLACTONE
     Route: 048
  5. LETAIRIS [Suspect]
     Active Substance: AMBRISENTAN
     Indication: PULMONARY ARTERIAL HYPERTENSION
     Route: 048
  6. TORSEMIDE. [Concomitant]
     Active Substance: TORSEMIDE
     Route: 048
  7. METOLAZONE. [Concomitant]
     Active Substance: METOLAZONE
     Route: 048

REACTIONS (2)
  - Malaise [None]
  - Nasal congestion [None]
